FAERS Safety Report 7238429 (Version 24)
Quarter: 2017Q3

REPORT INFORMATION
  Report Type: Report from Study
  Country: CA (occurrence: CA)
  Receive Date: 20100106
  Receipt Date: 20170707
  Transmission Date: 20171128
  Serious: Yes (Other)
  Sender: FDA-Public Use
  Company Number: PHHY2009CA37272

PATIENT
  Age: 62 Year
  Sex: Female

DRUGS (8)
  1. CANNABIDIOL [Concomitant]
     Active Substance: CANNABIDIOL
     Indication: PITUITARY TUMOUR
     Dosage: UNK
     Route: 065
     Dates: start: 2013
  2. SANDOSTATIN LAR DEPOT [Suspect]
     Active Substance: OCTREOTIDE ACETATE
     Dosage: 30 MG, EVERY 3 WEEKS
     Route: 030
     Dates: start: 20091216
  3. SANDOSTATIN LAR DEPOT [Suspect]
     Active Substance: OCTREOTIDE ACETATE
     Dosage: 10 MG, QMO (EVERY 4 WEEKS)
     Route: 030
     Dates: start: 20160824
  4. SANDOSTATIN LAR DEPOT [Suspect]
     Active Substance: OCTREOTIDE ACETATE
     Dosage: 30 MG, QMO (EVERY 4 WEEKS)
     Route: 030
     Dates: start: 20101101
  5. SANDOSTATIN LAR DEPOT [Suspect]
     Active Substance: OCTREOTIDE ACETATE
     Dosage: 20 MG, QMO (ONCE A MONTH)
     Route: 030
     Dates: start: 20141104
  6. SANDOSTATIN LAR DEPOT [Suspect]
     Active Substance: OCTREOTIDE ACETATE
     Dosage: 20 MG, EVERY 4 WEEKS
     Route: 030
     Dates: start: 20091024
  7. SANDOSTATIN LAR DEPOT [Suspect]
     Active Substance: OCTREOTIDE ACETATE
     Dosage: 20 MG, QMO  (EVERY 4 WEEKS)
     Route: 030
     Dates: start: 20160229, end: 20160724
  8. SANDOSTATIN LAR DEPOT [Suspect]
     Active Substance: OCTREOTIDE ACETATE
     Indication: ACROMEGALY
     Dosage: 30 MG, QMO (EVERY 4 WEEKS)
     Route: 030
     Dates: start: 19990104

REACTIONS (38)
  - Joint range of motion decreased [Unknown]
  - Inappropriate schedule of drug administration [Unknown]
  - Arthralgia [Not Recovered/Not Resolved]
  - Crying [Unknown]
  - Blood pressure systolic increased [Unknown]
  - Blood pressure diastolic increased [Unknown]
  - Cataract [Unknown]
  - Osteoarthritis [Unknown]
  - Blood growth hormone increased [Unknown]
  - Limb discomfort [Unknown]
  - Dyspepsia [Unknown]
  - Suicidal ideation [Unknown]
  - Ligament sprain [Unknown]
  - Chest pain [Unknown]
  - Feeling abnormal [Unknown]
  - Stress [Unknown]
  - Nodule [Unknown]
  - Influenza like illness [Recovered/Resolved]
  - Injection site bruising [Unknown]
  - Joint effusion [Unknown]
  - Myalgia [Unknown]
  - Tinnitus [Unknown]
  - Musculoskeletal pain [Unknown]
  - Cardiac ventricular disorder [Unknown]
  - Bone formation increased [Not Recovered/Not Resolved]
  - Psychiatric symptom [Unknown]
  - Malaise [Unknown]
  - Ear discomfort [Unknown]
  - Sensory disturbance [Recovering/Resolving]
  - Myocardial fibrosis [Unknown]
  - Joint stiffness [Recovering/Resolving]
  - Fear [Unknown]
  - Depressed mood [Unknown]
  - Arthritis [Unknown]
  - Visual acuity reduced [Unknown]
  - Impaired healing [Unknown]
  - Asthenia [Unknown]
  - Hypoaesthesia [Unknown]

NARRATIVE: CASE EVENT DATE: 1999
